FAERS Safety Report 10143857 (Version 2)
Quarter: 2014Q2

REPORT INFORMATION
  Report Type: Spontaneous
  Country: US (occurrence: US)
  Receive Date: 20140430
  Receipt Date: 20140520
  Transmission Date: 20141212
  Serious: Yes (Hospitalization)
  Sender: FDA-Public Use
  Company Number: US-INCYTE CORPORATION-2014IN001144

PATIENT
  Age: 91 Year
  Sex: Female
  Weight: 33.56 kg

DRUGS (9)
  1. JAKAFI [Suspect]
     Indication: MYELOFIBROSIS
     Dosage: 20 MG, BID
     Route: 048
     Dates: start: 20140219
  2. JAKAFI [Suspect]
     Indication: ESSENTIAL THROMBOCYTHAEMIA
  3. LORAZEPAM [Concomitant]
  4. DIGOXIN [Concomitant]
     Dosage: 250 MCG, QD
  5. LISINOPRIL [Concomitant]
  6. METOPROLOL SUCCINATE ER [Concomitant]
     Dosage: 50 MG, BID
  7. STOOL SOFTENER [Concomitant]
  8. ASPIRIN [Concomitant]
     Dosage: 81 MG, QD
  9. LEXAPRO [Concomitant]
     Dosage: 10 MG, QD

REACTIONS (5)
  - Fall [Recovered/Resolved]
  - Hip fracture [Unknown]
  - Asthenia [Unknown]
  - Anaemia [Unknown]
  - Platelet count decreased [Unknown]
